FAERS Safety Report 19079390 (Version 6)
Quarter: 2021Q4

REPORT INFORMATION
  Report Type: Spontaneous
  Country: PL (occurrence: PL)
  Receive Date: 20210331
  Receipt Date: 20211008
  Transmission Date: 20220303
  Serious: Yes (Death, Hospitalization)
  Sender: FDA-Public Use
  Company Number: PL-CELGENE-POL-20210307268

PATIENT
  Age: 66 Year
  Sex: Male

DRUGS (23)
  1. AZACITIDINE [Suspect]
     Active Substance: AZACITIDINE
     Indication: Acute myeloid leukaemia
     Route: 065
     Dates: start: 20201214, end: 20210309
  2. PEVONEDISTAT [Suspect]
     Active Substance: PEVONEDISTAT
     Indication: Acute myeloid leukaemia
     Route: 065
     Dates: start: 20201214, end: 20210309
  3. VENETOCLAX [Suspect]
     Active Substance: VENETOCLAX
     Indication: Acute myeloid leukaemia
     Route: 065
     Dates: start: 20201214, end: 20210309
  4. GLICLAZIDE [Concomitant]
     Active Substance: GLICLAZIDE
     Indication: Diabetes mellitus
     Route: 065
     Dates: start: 2015
  5. METFORMIN HYDROCHLORIDE [Concomitant]
     Active Substance: METFORMIN HYDROCHLORIDE
     Indication: Diabetes mellitus
     Route: 065
     Dates: start: 2015
  6. ALFABAX [Concomitant]
     Indication: Benign prostatic hyperplasia
     Route: 065
     Dates: start: 2018
  7. ACYCLOVIR [Concomitant]
     Active Substance: ACYCLOVIR
     Indication: Herpes zoster
     Route: 065
     Dates: start: 20210205
  8. ACYCLOVIR [Concomitant]
     Active Substance: ACYCLOVIR
     Indication: Prophylaxis
  9. ALLOPURINOL [Concomitant]
     Active Substance: ALLOPURINOL
     Indication: Prophylaxis
     Route: 065
     Dates: start: 20210209
  10. ACARD [Concomitant]
     Indication: Thrombosis prophylaxis
     Route: 065
     Dates: start: 20210209
  11. LACTULOSE [Concomitant]
     Active Substance: LACTULOSE
     Indication: Constipation
     Route: 065
     Dates: start: 20210215, end: 20210301
  12. ENTEROL [Concomitant]
     Indication: Probiotic therapy
     Route: 065
     Dates: start: 20210215, end: 20210221
  13. CETIX [Concomitant]
     Indication: Febrile neutropenia
     Route: 065
     Dates: start: 20210219, end: 20210221
  14. MYCAMINE [Concomitant]
     Active Substance: MICAFUNGIN SODIUM
     Indication: Prophylaxis
     Route: 065
     Dates: start: 20210222, end: 20210301
  15. UNSPECIFIED INGREDIENT [Concomitant]
     Active Substance: UNSPECIFIED INGREDIENT
     Indication: Prophylaxis
     Route: 065
     Dates: start: 20210222
  16. UNSPECIFIED INGREDIENT [Concomitant]
     Active Substance: UNSPECIFIED INGREDIENT
     Indication: Bacteraemia
  17. ZOFRAN [Concomitant]
     Active Substance: ONDANSETRON HYDROCHLORIDE
     Indication: Prophylaxis of nausea and vomiting
     Route: 065
     Dates: start: 20210222, end: 20210301
  18. AMOXICILLIN TRIHYDRATE [Concomitant]
     Active Substance: AMOXICILLIN
     Indication: Antibiotic prophylaxis
     Route: 065
     Dates: start: 20210222, end: 20210310
  19. PERFALGAN [Concomitant]
     Active Substance: ACETAMINOPHEN
     Indication: Neuralgia
     Route: 065
     Dates: start: 20210310
  20. TRAMADOL [Concomitant]
     Active Substance: TRAMADOL
     Indication: Neuralgia
     Route: 065
     Dates: start: 20210310
  21. CEFTAZIDIME [Concomitant]
     Active Substance: CEFTAZIDIME
     Indication: Bacteraemia
     Route: 065
     Dates: start: 20210311, end: 20210312
  22. MEROPENEM [Concomitant]
     Active Substance: MEROPENEM
     Indication: Bacteraemia
     Route: 065
     Dates: start: 20210313
  23. FLUCONAZOLE [Concomitant]
     Active Substance: FLUCONAZOLE
     Indication: Prophylaxis
     Route: 065
     Dates: start: 20210311

REACTIONS (1)
  - COVID-19 pneumonia [Fatal]

NARRATIVE: CASE EVENT DATE: 20210319
